FAERS Safety Report 7068533-X (Version None)
Quarter: 2010Q4

REPORT INFORMATION
  Report Type: 
  Country: None (occurrence: None)
  Receive Date: 20101028
  Receipt Date: 20101022
  Transmission Date: 20110411
  Serious: Yes (Other)
  Sender: FDA-Public Use
  Company Number: JP-ROCHE-736379

PATIENT
  Age: 60 Year
  Sex: Male

DRUGS (2)
  1. ACTEMRA [Suspect]
     Indication: RHEUMATOID ARTHRITIS
     Route: 041
     Dates: start: 20100909, end: 20100909
  2. ACTEMRA [Suspect]
     Route: 041
     Dates: start: 20100101, end: 20100101

REACTIONS (1)
  - GASTRIC CANCER [None]
